FAERS Safety Report 8431099-3 (Version None)
Quarter: 2012Q2

REPORT INFORMATION
  Report Type: 
  Country: None (occurrence: None)
  Receive Date: 20120612
  Receipt Date: 20120605
  Transmission Date: 20120825
  Serious: Yes (Hospitalization)
  Sender: FDA-Public Use
  Company Number: CA-ROCHE-1076051

PATIENT
  Sex: Female
  Weight: 59.02 kg

DRUGS (11)
  1. ALDACTONE [Concomitant]
  2. DIPHENHYDRAMINE HCL [Concomitant]
     Indication: PREMEDICATION
     Route: 048
     Dates: start: 20111116, end: 20111116
  3. CELEBREX [Concomitant]
  4. SANDOZ BISOPROLOL [Concomitant]
  5. ARAVA [Concomitant]
  6. PREDNISONE [Concomitant]
  7. MABTHERA [Suspect]
     Indication: RHEUMATOID ARTHRITIS
     Route: 042
     Dates: start: 20100809, end: 20111116
  8. LIPITOR [Concomitant]
  9. ATACAND [Concomitant]
  10. ACETAMINOPHEN [Concomitant]
     Indication: PREMEDICATION
     Route: 048
     Dates: start: 20111116, end: 20111116
  11. METHYLPREDNISOLONE [Concomitant]
     Indication: PREMEDICATION
     Route: 042
     Dates: start: 20111116, end: 20111116

REACTIONS (3)
  - PNEUMONIA [None]
  - HYPERTENSION [None]
  - ARRHYTHMIA [None]
